FAERS Safety Report 10034638 (Version 2)
Quarter: 2014Q2

REPORT INFORMATION
  Report Type: Spontaneous
  Country: JP (occurrence: JP)
  Receive Date: 20140325
  Receipt Date: 20140516
  Transmission Date: 20141212
  Serious: Yes (Other)
  Sender: FDA-Public Use
  Company Number: JP-AMGEN-JPNSP2014020192

PATIENT
  Age: 82 Year
  Sex: Female
  Weight: 45 kg

DRUGS (8)
  1. PRALIA [Suspect]
     Indication: OSTEOPOROSIS
     Dosage: 60 MG/ TIME
     Route: 058
     Dates: start: 20140227
  2. ONEALFA [Concomitant]
     Indication: OSTEOPOROSIS
     Dosage: 1 MUG, QD
     Route: 065
     Dates: start: 20140314
  3. CALCIUM LACTATE [Concomitant]
     Indication: OSTEOPOROSIS
     Dosage: 2 G, QD
     Route: 048
     Dates: start: 20140314
  4. URSO                               /00465701/ [Concomitant]
     Indication: PANCREATIC NEOPLASM
     Dosage: 100 MG, TID
     Route: 048
  5. METHYCOBAL [Concomitant]
     Indication: NECK INJURY
     Dosage: 500 MG, TID
     Route: 048
  6. PRORENAL [Concomitant]
     Indication: NECK INJURY
     Dosage: 5 MUG, TID
     Route: 048
  7. BAYASPIRIN [Concomitant]
     Indication: SICK SINUS SYNDROME
     Dosage: 100 MG, QD
     Route: 048
  8. FAMOTIDINE [Concomitant]
     Indication: PANCREATIC NEOPLASM
     Dosage: 20 MG, QD
     Route: 048

REACTIONS (2)
  - Hepatic function abnormal [Recovering/Resolving]
  - Hypocalcaemia [Recovering/Resolving]
